FAERS Safety Report 5931623-6 (Version None)
Quarter: 2008Q4

REPORT INFORMATION
  Report Type: 
  Country: None (occurrence: None)
  Receive Date: 20081027
  Receipt Date: 20081016
  Transmission Date: 20090506
  Serious: Yes (Hospitalization)
  Sender: FDA-Public Use
  Company Number: FR-JNJFOC-20081000102

PATIENT
  Age: 54 Year
  Sex: Female
  Weight: 57 kg

DRUGS (12)
  1. REMICADE [Suspect]
     Route: 042
  2. REMICADE [Suspect]
     Route: 042
  3. REMICADE [Suspect]
     Route: 042
  4. REMICADE [Suspect]
     Route: 042
  5. REMICADE [Suspect]
     Dosage: 3 BOTTLES 11 INFUSION
     Route: 042
  6. REMICADE [Suspect]
     Route: 042
  7. REMICADE [Suspect]
     Route: 042
  8. REMICADE [Suspect]
     Route: 042
  9. REMICADE [Suspect]
     Route: 042
  10. REMICADE [Suspect]
     Indication: ANKYLOSING SPONDYLITIS
     Dosage: 2 BOTTLES
     Route: 042
  11. REMICADE [Suspect]
     Indication: CROHN'S DISEASE
     Dosage: 2 BOTTLES
     Route: 042
  12. VIRLIX [Concomitant]
     Indication: PREMEDICATION

REACTIONS (8)
  - BLOOD PRESSURE INCREASED [None]
  - CHEST DISCOMFORT [None]
  - CHILLS [None]
  - COUGH [None]
  - FEELING HOT [None]
  - HYPERSENSITIVITY [None]
  - INFUSION RELATED REACTION [None]
  - NAUSEA [None]
